FAERS Safety Report 17167401 (Version 1)
Quarter: 2019Q4

REPORT INFORMATION
  Report Type: Spontaneous
  Country: US (occurrence: US)
  Receive Date: 20191217
  Receipt Date: 20191217
  Transmission Date: 20200122
  Serious: Yes (Other)
  Sender: FDA-Public Use
  Company Number: None

PATIENT
  Age: 25 Year
  Sex: Male
  Weight: 112.5 kg

DRUGS (1)
  1. RISPERIDONE INJECTION [Suspect]
     Active Substance: RISPERIDONE
     Indication: PRODUCT USED FOR UNKNOWN INDICATION
     Dosage: ?          OTHER FREQUENCY:EVERY 2 WEEKS;?
     Route: 030
     Dates: start: 20191205, end: 20191205

REACTIONS (7)
  - Psychotic disorder [None]
  - Drooling [None]
  - Dyskinesia [None]
  - Speech disorder [None]
  - Musculoskeletal stiffness [None]
  - Dyspnoea [None]
  - Tremor [None]

NARRATIVE: CASE EVENT DATE: 20191213
